FAERS Safety Report 4721688-1 (Version None)
Quarter: 2005Q3

REPORT INFORMATION
  Report Type: 
  Country: None (occurrence: None)
  Receive Date: 20050721
  Receipt Date: 20050224
  Transmission Date: 20060218
  Serious: No
  Sender: FDA-Public Use
  Company Number: US-BRISTOL-MYERS SQUIBB COMPANY-12875977

PATIENT
  Sex: Male

DRUGS (2)
  1. COUMADIN [Suspect]
  2. ANDROGEL [Interacting]

REACTIONS (2)
  - DRUG INTERACTION [None]
  - LABORATORY TEST ABNORMAL [None]
